FAERS Safety Report 18239441 (Version 1)
Quarter: 2020Q3

REPORT INFORMATION
  Report Type: Spontaneous
  Country: US (occurrence: US)
  Receive Date: 20200908
  Receipt Date: 20200908
  Transmission Date: 20201103
  Serious: Yes (Other)
  Sender: FDA-Public Use
  Company Number: US-SUN PHARMACEUTICAL INDUSTRIES LTD-2020R1-258818

PATIENT
  Age: 77 Year
  Sex: Female

DRUGS (2)
  1. ALBUTEROL. [Concomitant]
     Active Substance: ALBUTEROL
     Indication: ASTHMA
     Dosage: UNK
     Route: 065
  2. IPRATROPIUM [Suspect]
     Active Substance: IPRATROPIUM
     Indication: ASTHMA
     Dosage: (3 PUFFS PER DAY FOR 5?6 YEARS
     Route: 065

REACTIONS (1)
  - Haemangioma [Recovered/Resolved]
